FAERS Safety Report 5106295-3 (Version None)
Quarter: 2006Q3

REPORT INFORMATION
  Report Type: 
  Country: None (occurrence: None)
  Receive Date: 20060918
  Receipt Date: 20060904
  Transmission Date: 20061208
  Serious: Yes (Other)
  Sender: FDA-Public Use
  Company Number: FRWYE848404SEP06

PATIENT
  Sex: Male

DRUGS (3)
  1. ENBREL [Suspect]
     Dosage: UNKNOWN
     Route: 058
     Dates: start: 20060201
  2. NOVATREX [Suspect]
     Dosage: UNKNOWN
     Route: 048
  3. CORTANCYL [Concomitant]
     Dosage: UNKNOWN
     Route: 048

REACTIONS (3)
  - DYSPNOEA [None]
  - PHARYNGEAL OEDEMA [None]
  - STOMATITIS [None]
